FAERS Safety Report 11261808 (Version 3)
Quarter: 2015Q3

REPORT INFORMATION
  Report Type: Spontaneous
  Country: KW (occurrence: KW)
  Receive Date: 20150710
  Receipt Date: 20150929
  Transmission Date: 20151125
  Serious: Yes (Death, Hospitalization, Disabling, Other)
  Sender: FDA-Public Use
  Company Number: KW-INCYTE CORPORATION-2015IN003155

PATIENT
  Age: 88 Year
  Sex: Male

DRUGS (1)
  1. JAKAFI [Suspect]
     Active Substance: RUXOLITINIB
     Indication: MYELOFIBROSIS
     Dosage: 10 MG, BID
     Route: 048

REACTIONS (11)
  - Encephalitis [Unknown]
  - Pneumonia [Unknown]
  - Disseminated intravascular coagulation [Fatal]
  - Post herpetic neuralgia [Unknown]
  - Cardio-respiratory arrest [Fatal]
  - Herpes zoster [Not Recovered/Not Resolved]
  - Sepsis [Fatal]
  - Myelofibrosis [Fatal]
  - Circulatory collapse [Unknown]
  - Klebsiella test positive [Unknown]
  - Herpes simplex serology positive [Unknown]

NARRATIVE: CASE EVENT DATE: 20141115
